FAERS Safety Report 24041915 (Version 4)
Quarter: 2024Q3

REPORT INFORMATION
  Report Type: Report from Study
  Country: MX (occurrence: MX)
  Receive Date: 20240702
  Receipt Date: 20240726
  Transmission Date: 20241016
  Serious: Yes (Death, Disabling, Other)
  Sender: NOVARTIS
  Company Number: MX-002147023-NVSC2024MX088583

PATIENT
  Age: 69 Year
  Sex: Male
  Weight: 65 kg

DRUGS (8)
  1. TASIGNA [Suspect]
     Active Substance: NILOTINIB
     Indication: Chronic myeloid leukaemia
     Dosage: 800 MG, QD (4X 200 MG (2 IN THE MORNING AND 2 IN THE NIGHT)
     Route: 048
  2. TASIGNA [Suspect]
     Active Substance: NILOTINIB
     Dosage: 600 MG, QD (3 X 200 MG, 2 IN THE MORNING AND 1 AT NIGHT)
     Route: 048
     Dates: start: 20240418
  3. TASIGNA [Suspect]
     Active Substance: NILOTINIB
     Dosage: 200 MG, BID (2 X 200MG)
     Route: 048
  4. TASIGNA [Suspect]
     Active Substance: NILOTINIB
     Dosage: (IN THE MORNING AND AT NIGHT) BID
     Route: 048
  5. TASIGNA [Suspect]
     Active Substance: NILOTINIB
     Dosage: 600 MG, QD (3 X 200MG (2 IN THE MORNING AND 1 AT NIGHT)
     Route: 048
  6. TASIGNA [Suspect]
     Active Substance: NILOTINIB
     Dosage: 200 MG, Q12H (2 X 200MG )
     Route: 048
     Dates: end: 202404
  7. TASIGNA [Suspect]
     Active Substance: NILOTINIB
     Dosage: 200 MG, OTHER (3 X 200MG) 2 IN THE MORNING AND 1 AT NIGHT
     Route: 048
     Dates: start: 202404, end: 20240705
  8. ATORVASTATIN [Concomitant]
     Active Substance: ATORVASTATIN
     Indication: Blood cholesterol increased
     Dosage: 1 DOSAGE FORM, QD
     Route: 048
     Dates: end: 20240705

REACTIONS (13)
  - Cardiac arrest [Fatal]
  - Malaise [Fatal]
  - Neoplasm malignant [Unknown]
  - Diabetes mellitus [Not Recovered/Not Resolved]
  - Anaemia [Unknown]
  - Hypertension [Not Recovered/Not Resolved]
  - Prostatic disorder [Not Recovered/Not Resolved]
  - Angiopathy [Not Recovered/Not Resolved]
  - Depression [Not Recovered/Not Resolved]
  - Cough [Not Recovered/Not Resolved]
  - Productive cough [Unknown]
  - Eating disorder [Unknown]
  - Off label use [Unknown]

NARRATIVE: CASE EVENT DATE: 20240418
